FAERS Safety Report 9611057 (Version 11)
Quarter: 2013Q4

REPORT INFORMATION
  Report Type: Report from Study
  Country: CA (occurrence: CA)
  Receive Date: 20131009
  Receipt Date: 20131213
  Transmission Date: 20140711
  Serious: Yes (Hospitalization, Other)
  Sender: FDA-Public Use
  Company Number: CA-ROCHE-1219763

PATIENT
  Age: 45 Year
  Sex: Male
  Weight: 87.8 kg

DRUGS (16)
  1. AVASTIN [Suspect]
     Indication: GLIOBLASTOMA
     Route: 042
     Dates: start: 20130417
  2. AVASTIN [Suspect]
     Route: 042
     Dates: start: 20131022
  3. AVASTIN [Suspect]
     Route: 042
     Dates: end: 20131120
  4. HYDROMORPH CONTIN [Suspect]
     Indication: ANALGESIC THERAPY
     Route: 065
  5. DILAUDID [Suspect]
     Indication: ANALGESIC THERAPY
     Route: 048
  6. GABAPENTIN [Suspect]
     Indication: PRODUCT USED FOR UNKNOWN INDICATION
     Route: 065
  7. DEXAMETHASONE [Concomitant]
     Dosage: 8 MG IN MORNING AND 4 MG IN PM
     Route: 065
     Dates: end: 20130404
  8. KEPPRA [Concomitant]
     Route: 065
     Dates: end: 20130404
  9. DILANTIN [Concomitant]
     Route: 065
     Dates: end: 20130404
  10. OMEPRAZOLE [Concomitant]
     Route: 065
  11. ZOFRAN [Concomitant]
     Dosage: PRIOR TO CHEMO
     Route: 065
  12. CYMBALTA [Concomitant]
     Route: 065
  13. NAPROXEN [Concomitant]
     Route: 065
  14. STEMETIL [Concomitant]
     Route: 065
  15. ACCURETIC [Concomitant]
     Route: 065
  16. NORTRIPTYLINE [Concomitant]

REACTIONS (21)
  - Abscess jaw [Unknown]
  - Brain oedema [Not Recovered/Not Resolved]
  - Hypertension [Not Recovered/Not Resolved]
  - Partial seizures [Unknown]
  - Memory impairment [Not Recovered/Not Resolved]
  - Memory impairment [Not Recovered/Not Resolved]
  - Haematuria [Unknown]
  - Chromaturia [Unknown]
  - Oral candidiasis [Recovered/Resolved]
  - Headache [Not Recovered/Not Resolved]
  - Nausea [Not Recovered/Not Resolved]
  - Weight increased [Unknown]
  - Bone pain [Unknown]
  - Neuralgia [Unknown]
  - Rash [Not Recovered/Not Resolved]
  - Pain [Unknown]
  - Pruritus [Unknown]
  - Fungal infection [Unknown]
  - Disease progression [Unknown]
  - Urinary tract infection [Unknown]
  - Dysuria [Recovered/Resolved]
